FAERS Safety Report 5226781-5 (Version None)
Quarter: 2007Q1

REPORT INFORMATION
  Report Type: 
  Country: None (occurrence: None)
  Receive Date: 20070130
  Receipt Date: 20070117
  Transmission Date: 20070707
  Serious: Yes (Other)
  Sender: FDA-Public Use
  Company Number: IND-AE-07-SAN-001

PATIENT
  Age: 74 Year
  Sex: Female
  Weight: 51 kg

DRUGS (12)
  1. SANCTURA [Suspect]
     Dosage: 20MG - ORAL
     Route: 048
     Dates: start: 20060712, end: 20060712
  2. ASPIRIN [Concomitant]
  3. BENDROFLUMETHIAZIDE [Concomitant]
  4. CALCIUM CARBONATE [Concomitant]
  5. HYDRALAZINE HCL [Concomitant]
  6. ISOSORBIDE MONONITRATE [Concomitant]
  7. PARACETAMOL [Concomitant]
  8. RAMIPRIL [Concomitant]
  9. SODIUM ALGINATE [Concomitant]
  10. SODIUM BICARBONATE [Concomitant]
  11. TEMAZEPAM [Concomitant]
  12. TRAMADOL HCL [Concomitant]

REACTIONS (7)
  - DRY EYE [None]
  - DRY MOUTH [None]
  - DRY THROAT [None]
  - DYSPHAGIA [None]
  - DYSURIA [None]
  - FATIGUE [None]
  - SOMNOLENCE [None]
